FAERS Safety Report 12844163 (Version 1)
Quarter: 2016Q4

REPORT INFORMATION
  Report Type: Spontaneous
  Country: US (occurrence: US)
  Receive Date: 20161012
  Receipt Date: 20161012
  Transmission Date: 20170207
  Serious: Yes (Death)
  Sender: FDA-Public Use
  Company Number: None

PATIENT
  Age: 89 Year
  Weight: 56.25 kg

DRUGS (1)
  1. XARELTO [Suspect]
     Active Substance: RIVAROXABAN
     Indication: BLOOD URINE PRESENT

REACTIONS (4)
  - Cerebrovascular accident [None]
  - Fall [None]
  - Haemoglobin decreased [None]
  - Drug effect increased [None]

NARRATIVE: CASE EVENT DATE: 20160509
